FAERS Safety Report 19470128 (Version 2)
Quarter: 2021Q3

REPORT INFORMATION
  Report Type: Spontaneous
  Country: JP (occurrence: JP)
  Receive Date: 20210629
  Receipt Date: 20210709
  Transmission Date: 20211014
  Serious: Yes (Hospitalization)
  Sender: FDA-Public Use
  Company Number: JP-JNJFOC-20210660731

PATIENT

DRUGS (1)
  1. SIMPONI [Suspect]
     Active Substance: GOLIMUMAB
     Indication: RHEUMATOID ARTHRITIS
     Dosage: DOSE UNKNOWN?GOLIMUMAB (GENETICAL RECOMBINATION):50MG
     Route: 058

REACTIONS (1)
  - Orthopaedic procedure [Unknown]

NARRATIVE: CASE EVENT DATE: 20210624
